FAERS Safety Report 24070156 (Version 1)
Quarter: 2024Q3

REPORT INFORMATION
  Report Type: Spontaneous
  Country: IN (occurrence: IN)
  Receive Date: 20240710
  Receipt Date: 20240710
  Transmission Date: 20241017
  Serious: No
  Sender: ROCHE
  Company Number: IN-ROCHE-3564638

PATIENT
  Age: 57 Year
  Sex: Female

DRUGS (1)
  1. VABYSMO [Suspect]
     Active Substance: FARICIMAB\FARICIMAB-SVOA
     Indication: Product used for unknown indication
     Dosage: SECOND INFUSION IS DONE ON 15/MAY/2024
     Route: 065
     Dates: start: 20240122

REACTIONS (2)
  - Off label use [Unknown]
  - No adverse event [Unknown]
